FAERS Safety Report 5479526-8 (Version None)
Quarter: 2007Q4

REPORT INFORMATION
  Report Type: 
  Country: None (occurrence: None)
  Receive Date: 20071008
  Receipt Date: 20070924
  Transmission Date: 20080405
  Serious: Yes (Hospitalization)
  Sender: FDA-Public Use
  Company Number: FR-ROCHE-521586

PATIENT
  Age: 74 Year
  Sex: Female

DRUGS (3)
  1. RIVOTRIL [Suspect]
     Indication: DRUG USE FOR UNKNOWN INDICATION
     Dosage: DOSE RPTD AS 2 DOSES THRICE DAILY
     Route: 065
     Dates: start: 20070802
  2. MORPHINE [Suspect]
     Dosage: FORM RPTD AS INJECTABLE SOLUTION.
     Route: 042
     Dates: start: 20070804, end: 20070804
  3. MORPHINE [Suspect]
     Dosage: ON 9 AUG 2007, THE PATIENT RECEIVED 2 BOLOUS AT 3 MG
     Route: 042
     Dates: start: 20070806, end: 20070810

REACTIONS (6)
  - BRADYPNOEA [None]
  - CONFUSIONAL STATE [None]
  - MIOSIS [None]
  - NAUSEA [None]
  - SOMNOLENCE [None]
  - VOMITING [None]
